FAERS Safety Report 7028645-3 (Version None)
Quarter: 2010Q4

REPORT INFORMATION
  Report Type: 
  Country: None (occurrence: None)
  Receive Date: 20101001
  Receipt Date: 20101001
  Transmission Date: 20110411
  Serious: Yes (Other)
  Sender: FDA-Public Use
  Company Number: None

PATIENT
  Age: 34 Year
  Sex: Male
  Weight: 104.5 kg

DRUGS (1)
  1. VANCOMYCIN [Suspect]
     Indication: PROPHYLAXIS
     Dosage: 1 GRAM Q 12 HRS IV
     Route: 042
     Dates: start: 20100909, end: 20100910

REACTIONS (1)
  - RED MAN SYNDROME [None]
